FAERS Safety Report 6598030-7 (Version None)
Quarter: 2010Q1

REPORT INFORMATION
  Report Type: 
  Country: None (occurrence: None)
  Receive Date: 20100216
  Receipt Date: 20100129
  Transmission Date: 20100710
  Serious: Yes (Hospitalization)
  Sender: FDA-Public Use
  Company Number: 2010AL000801

PATIENT
  Age: 82 Year
  Sex: Female

DRUGS (10)
  1. RAMIPRIL [Suspect]
     Indication: HYPERTENSION
     Dosage: 2.5 MG, BID, PO
     Route: 048
     Dates: start: 20091113
  2. CARVEDILOL [Suspect]
     Indication: HYPERTENSION
     Dosage: 25 MG, QD, PO
     Route: 048
     Dates: start: 20000101
  3. NITRANGIN ^FARMARYN^ [Concomitant]
  4. PENTAERITHRITYL TETRANITRATE [Concomitant]
  5. PANTOZOL [Concomitant]
  6. TORSEMIDE [Concomitant]
  7. ZOLPIDEM [Concomitant]
  8. ASS ^CT-ARZNEIMITTEL^ [Concomitant]
  9. ARLEVERT [Concomitant]
  10. TRAMAL [Concomitant]

REACTIONS (6)
  - DIZZINESS [None]
  - DYSPNOEA [None]
  - LEFT VENTRICULAR HYPERTROPHY [None]
  - NAUSEA [None]
  - SYNCOPE [None]
  - VENTRICULAR EXTRASYSTOLES [None]
